FAERS Safety Report 4338225-6 (Version None)
Quarter: 2004Q2

REPORT INFORMATION
  Report Type: 
  Country: None (occurrence: None)
  Receive Date: 20040409
  Receipt Date: 20040326
  Transmission Date: 20050107
  Serious: No
  Sender: FDA-Public Use
  Company Number: 2004PK00586

PATIENT
  Age: 82 Year
  Sex: Male
  Weight: 54 kg

DRUGS (6)
  1. NEXIUM [Suspect]
     Indication: PROPHYLAXIS
     Dosage: 20 MG DAILY
     Route: 048
     Dates: start: 20031212, end: 20031226
  2. NEXIUM [Suspect]
     Indication: ULCER
     Dosage: 20 MG DAILY
     Route: 048
     Dates: start: 20031212, end: 20031226
  3. CIPRALEX [Suspect]
     Indication: DEPRESSION
     Dosage: 20 MG DAILY
     Route: 048
     Dates: start: 20031212, end: 20031226
  4. AUGMENTIN [Concomitant]
  5. MORPHIN STREULI [Concomitant]
  6. DAFALGAN [Concomitant]

REACTIONS (6)
  - ALANINE AMINOTRANSFERASE INCREASED [None]
  - ASPARTATE AMINOTRANSFERASE INCREASED [None]
  - CEREBROVASCULAR ACCIDENT [None]
  - HEPATIC ENZYME INCREASED [None]
  - HEPATOCELLULAR DAMAGE [None]
  - URINARY TRACT INFECTION [None]
